FAERS Safety Report 5480836-9 (Version None)
Quarter: 2007Q4

REPORT INFORMATION
  Report Type: 
  Country: None (occurrence: None)
  Receive Date: 20071009
  Receipt Date: 20070925
  Transmission Date: 20080405
  Serious: No
  Sender: FDA-Public Use
  Company Number: US-BOEHRINGER INGELHEIM PHARMACEUTICALS, INC.-2007-BP-20056BP

PATIENT
  Sex: Male

DRUGS (6)
  1. FLOMAX [Suspect]
     Indication: PROSTATE EXAMINATION ABNORMAL
     Dates: start: 20070501
  2. ACIPHEX [Concomitant]
  3. VITAMIN TAB [Concomitant]
  4. GLUCOSAMINE SULPHATE [Concomitant]
  5. LIQUID MINERALS [Concomitant]
  6. RED YEAST RICE [Concomitant]

REACTIONS (1)
  - HYPOAESTHESIA [None]
